FAERS Safety Report 6615927-X (Version None)
Quarter: 2010Q1

REPORT INFORMATION
  Report Type: 
  Country: None (occurrence: None)
  Receive Date: 20100305
  Receipt Date: 20100225
  Transmission Date: 20100710
  Serious: Yes (Death)
  Sender: FDA-Public Use
  Company Number: GXKR2010FR02318

PATIENT
  Age: 64 Year
  Sex: Female

DRUGS (5)
  1. ACETYLSALICYLIC ACID SRT [Suspect]
     Indication: ACUTE CORONARY SYNDROME
     Dosage: 250 MG/DAY
     Route: 065
  2. ACETYLSALICYLIC ACID SRT [Suspect]
     Dosage: 75 MG/DAY
     Route: 065
  3. CLOPIDOGREL [Suspect]
     Indication: ACUTE CORONARY SYNDROME
     Dosage: 600 MG/DAY
     Route: 065
  4. CLOPIDOGREL [Suspect]
     Dosage: 75 MG/DAY
     Route: 065
  5. ENOXAPARIN SODIUM [Concomitant]
     Indication: ACUTE CORONARY SYNDROME
     Dosage: 1 MG/KG, BID (DURING 24 H)
     Route: 065

REACTIONS (1)
  - HAEMORRHAGE INTRACRANIAL [None]
